FAERS Safety Report 6921513-4 (Version None)
Quarter: 2010Q3

REPORT INFORMATION
  Report Type: 
  Country: None (occurrence: None)
  Receive Date: 20100812
  Receipt Date: 20100806
  Transmission Date: 20110219
  Serious: Yes (Death, Life-Threatening, Hospitalization, Other)
  Sender: FDA-Public Use
  Company Number: PHHY2010US45120

PATIENT
  Sex: Male

DRUGS (6)
  1. GLEEVEC [Suspect]
     Indication: CHRONIC MYELOID LEUKAEMIA
     Dosage: 400 MG, QD
     Route: 048
     Dates: start: 20100107, end: 20100706
  2. HYDROXYUREA [Concomitant]
     Dosage: 500 MG DAILY
  3. ALLOPURINOL [Concomitant]
  4. PERCOCET [Concomitant]
     Indication: PAIN
     Dosage: 1 DF, PRN
     Route: 048
  5. CELEBREX [Concomitant]
     Dosage: 1 DF, BID
     Route: 048
  6. VICODIN [Concomitant]
     Dosage: 1 DF, PRN
     Route: 048

REACTIONS (24)
  - ABDOMINAL DISCOMFORT [None]
  - ARRHYTHMIA [None]
  - ASPARTATE AMINOTRANSFERASE INCREASED [None]
  - BLAST CRISIS IN MYELOGENOUS LEUKAEMIA [None]
  - BLOOD ALBUMIN DECREASED [None]
  - BLOOD MAGNESIUM INCREASED [None]
  - CEREBROVASCULAR ACCIDENT [None]
  - DEATH [None]
  - DILATATION VENTRICULAR [None]
  - FLUID RETENTION [None]
  - GLOBULINS DECREASED [None]
  - HAEMATOCRIT DECREASED [None]
  - HAEMOGLOBIN DECREASED [None]
  - INTERNATIONAL NORMALISED RATIO INCREASED [None]
  - JOINT SWELLING [None]
  - OEDEMA [None]
  - PLATELET COUNT DECREASED [None]
  - PROTEIN TOTAL DECREASED [None]
  - PROTHROMBIN TIME PROLONGED [None]
  - RENAL FAILURE CHRONIC [None]
  - SINUS TACHYCARDIA [None]
  - SWELLING [None]
  - TROPONIN I INCREASED [None]
  - VENTRICULAR HYPOKINESIA [None]
